FAERS Safety Report 6656693-1 (Version None)
Quarter: 2010Q1

REPORT INFORMATION
  Report Type: 
  Country: None (occurrence: None)
  Receive Date: 20100324
  Receipt Date: 20100315
  Transmission Date: 20100710
  Serious: Yes (Hospitalization)
  Sender: FDA-Public Use
  Company Number: 1000012491

PATIENT
  Age: 14 Year
  Sex: Female

DRUGS (4)
  1. CARBAMAZEPINE [Suspect]
  2. PHENOBARBITAL TAB [Suspect]
  3. DIVALPROEX SODIUM [Suspect]
  4. ZONISAMIDE [Suspect]

REACTIONS (15)
  - ABDOMINAL DISTENSION [None]
  - CONSTIPATION [None]
  - HYPOMENORRHOEA [None]
  - INTESTINAL OBSTRUCTION [None]
  - OVARIAN CYST [None]
  - OVARIAN GRANULOSA-THECA CELL TUMOUR [None]
  - OVARIAN HAEMORRHAGE [None]
  - OXYGEN SATURATION DECREASED [None]
  - PANCREATITIS [None]
  - PERITONITIS SCLEROSING [None]
  - PYREXIA [None]
  - RESPIRATORY DISTRESS [None]
  - THERAPEUTIC RESPONSE UNEXPECTED [None]
  - VOMITING [None]
  - WHITE BLOOD CELL COUNT INCREASED [None]
